FAERS Safety Report 26184491 (Version 1)
Quarter: 2025Q4

REPORT INFORMATION
  Report Type: Other
  Country: EU (occurrence: EU)
  Receive Date: 20251222
  Receipt Date: 20251222
  Transmission Date: 20260117
  Serious: Yes (Congenital Anomaly)
  Sender: GLENMARK
  Company Number: None

PATIENT
  Age: 1 Day
  Sex: Male
  Weight: 3 kg

DRUGS (1)
  1. FINGOLIMOD HYDROCHLORIDE [Suspect]
     Active Substance: FINGOLIMOD HYDROCHLORIDE
     Indication: Multiple sclerosis
     Dosage: UNK
     Route: 064
     Dates: start: 20200101

REACTIONS (2)
  - Lymphocyte count decreased [Recovered/Resolved]
  - Maternal exposure during pregnancy [Unknown]
